FAERS Safety Report 17326134 (Version 1)
Quarter: 2020Q1

REPORT INFORMATION
  Report Type: Spontaneous
  Country: FR (occurrence: FR)
  Receive Date: 20200127
  Receipt Date: 20200127
  Transmission Date: 20200409
  Serious: Yes (Hospitalization, Other)
  Sender: FDA-Public Use
  Company Number: FR-PFIZER INC-2020031494

PATIENT
  Age: 22 Year
  Sex: Female
  Weight: 64 kg

DRUGS (5)
  1. LINEZOLID. [Suspect]
     Active Substance: LINEZOLID
     Indication: OSTEITIS
     Dosage: 1200 MG, ONCE DAILY
     Route: 048
     Dates: start: 20190813
  2. PREGABALIN. [Suspect]
     Active Substance: PREGABALIN
     Indication: NEURALGIA
     Dosage: 300 MG, ONCE DAILY
     Route: 048
     Dates: start: 20190814
  3. LEVOFLOXACIN. [Suspect]
     Active Substance: LEVOFLOXACIN
     Indication: OSTEITIS
     Dosage: 500 MG, ONCE DAILY
     Route: 048
     Dates: start: 20190813
  4. CALCIUM FOLINATE [Suspect]
     Active Substance: LEUCOVORIN CALCIUM
     Dosage: 5 MG, ONCE DAILY
     Route: 048
     Dates: start: 20190718
  5. NOXAFIL [Suspect]
     Active Substance: POSACONAZOLE
     Indication: OSTEITIS
     Dosage: 100 MG, ONCE DAILY
     Route: 048
     Dates: start: 20190823

REACTIONS (1)
  - Cholecystitis acute [Recovered/Resolved]

NARRATIVE: CASE EVENT DATE: 20190910
